FAERS Safety Report 26199922 (Version 1)
Quarter: 2025Q4

REPORT INFORMATION
  Report Type: Report from Study
  Country: None (occurrence: EU)
  Receive Date: 20251225
  Receipt Date: 20251225
  Transmission Date: 20260118
  Serious: Yes (Hospitalization)
  Sender: ALNYLAM PHARMACEUTICALS
  Company Number: EU-ALNYLAM PHARMACEUTICALS, INC.-ALN-2025-008175

PATIENT
  Age: 61 Year
  Weight: 81 kg

DRUGS (4)
  1. ONPATTRO [Suspect]
     Active Substance: PATISIRAN SODIUM
     Indication: Product used for unknown indication
     Dosage: UNK UNK, Q3W (24.3)
  2. VITAMIN A [Concomitant]
     Active Substance: VITAMIN A
     Indication: Hereditary neuropathic amyloidosis
     Dosage: 2500 UNITS, QD
     Route: 061
  3. DEXAMETHASONE [Concomitant]
     Active Substance: DEXAMETHASONE
     Indication: Product used for unknown indication
     Dosage: 10 MILLIGRAM, Q3W, BEFORE INFUSION
  4. DIMETHINDENE [Concomitant]
     Active Substance: DIMETHINDENE
     Indication: Product used for unknown indication
     Dosage: 4 MILLIGRAM, Q3W, BEFORE INFUSION

REACTIONS (4)
  - Fall [Recovering/Resolving]
  - Pelvic fracture [Recovering/Resolving]
  - Rib fracture [Recovering/Resolving]
  - Lumbar vertebral fracture [Recovering/Resolving]
